FAERS Safety Report 4784375-X (Version None)
Quarter: 2005Q3

REPORT INFORMATION
  Report Type: 
  Country: None (occurrence: None)
  Receive Date: 20050929
  Receipt Date: 20050929
  Transmission Date: 20060218
  Serious: Yes (Life-Threatening, Hospitalization, Disabling)
  Sender: FDA-Public Use
  Company Number: None

PATIENT
  Age: 50 Year
  Sex: Male
  Weight: 81.6475 kg

DRUGS (3)
  1. ZITHROMAX [Suspect]
     Indication: UPPER RESPIRATORY TRACT INFECTION
     Dosage: 1 TABLET EACH DAY PO
     Route: 048
     Dates: start: 20021031, end: 20021102
  2. BANDAGE LENSES [Concomitant]
  3. DRUG THERAPY [Concomitant]

REACTIONS (3)
  - EYE DISORDER [None]
  - KERATOCONJUNCTIVITIS SICCA [None]
  - TOXIC EPIDERMAL NECROLYSIS [None]
